FAERS Safety Report 9279115 (Version 1)
Quarter: 2013Q2

REPORT INFORMATION
  Report Type: Spontaneous
  Country: US (occurrence: US)
  Receive Date: 20130508
  Receipt Date: 20130508
  Transmission Date: 20140414
  Serious: Yes (Other)
  Sender: FDA-Public Use
  Company Number: US-BAYER-2013-056482

PATIENT
  Age: 23 Year
  Sex: Female

DRUGS (2)
  1. YAZ [Suspect]
  2. ZYRTEC [Concomitant]
     Dosage: 10 MG, DAILY

REACTIONS (3)
  - Axillary vein thrombosis [None]
  - Thrombophlebitis superficial [None]
  - Subclavian vein thrombosis [None]
